FAERS Safety Report 5240105-9 (Version None)
Quarter: 2007Q1

REPORT INFORMATION
  Report Type: 
  Country: None (occurrence: None)
  Receive Date: 20070216
  Receipt Date: 20070207
  Transmission Date: 20070707
  Serious: Yes (Other)
  Sender: FDA-Public Use
  Company Number: US-PFIZER INC-2007010516

PATIENT
  Sex: Male

DRUGS (9)
  1. DOXORUBICIN HCL [Suspect]
     Indication: BONE SARCOMA
     Dates: start: 20030101, end: 20040101
  2. CISPLATIN [Suspect]
     Indication: BONE SARCOMA
     Dates: start: 20030101, end: 20040101
  3. DOCETAXEL [Suspect]
     Indication: METASTASES TO LUNG
     Route: 042
  4. GEMCITABINE [Suspect]
     Indication: METASTASES TO LUNG
  5. IFOSFAMIDE [Suspect]
     Indication: BONE SARCOMA
     Dates: start: 20030101, end: 20040101
  6. HERBAL PREPARATION [Suspect]
  7. OXYCODONE HCL [Concomitant]
  8. PARACETAMOL [Concomitant]
  9. ZOLPIDEM TARTRATE [Concomitant]

REACTIONS (2)
  - RENAL FAILURE CHRONIC [None]
  - RENAL TUBULAR NECROSIS [None]
